FAERS Safety Report 9572728 (Version 1)
Quarter: 2013Q4

REPORT INFORMATION
  Report Type: Spontaneous
  Country: FR (occurrence: FR)
  Receive Date: 20131001
  Receipt Date: 20131001
  Transmission Date: 20140711
  Serious: Yes (Other)
  Sender: FDA-Public Use
  Company Number: FR-WATSON-2013-17325

PATIENT
  Age: 59 Year
  Sex: Male

DRUGS (3)
  1. AMLODIPINE (UNKNOWN) [Suspect]
     Indication: HYPERTENSION
     Dosage: 1 DF, DAILY
     Route: 065
     Dates: start: 201104
  2. AMLODIPINE (UNKNOWN) [Suspect]
     Dosage: 1 DF, DAILY
     Route: 065
     Dates: start: 200906, end: 201010
  3. TENSTATEN [Concomitant]
     Indication: PRODUCT USED FOR UNKNOWN INDICATION
     Dosage: UNK, UNK
     Dates: start: 2009

REACTIONS (1)
  - Eczema [Recovered/Resolved with Sequelae]
